FAERS Safety Report 7889908-2 (Version None)
Quarter: 2011Q4

REPORT INFORMATION
  Report Type: 
  Country: None (occurrence: None)
  Receive Date: 20111103
  Receipt Date: 20111026
  Transmission Date: 20120403
  Serious: Yes (Hospitalization)
  Sender: FDA-Public Use
  Company Number: KR-ELI_LILLY_AND_COMPANY-KR201108006072

PATIENT
  Age: 41 Year
  Sex: Female

DRUGS (2)
  1. BYETTA [Suspect]
     Indication: TYPE 2 DIABETES MELLITUS
     Dosage: 5 UG, BID
     Route: 058
     Dates: start: 20110728, end: 20110817
  2. BYETTA [Suspect]
     Dosage: UNK, UNKNOWN

REACTIONS (4)
  - INJECTION SITE OEDEMA [None]
  - PRURITUS GENERALISED [None]
  - URTICARIA [None]
  - ROAD TRAFFIC ACCIDENT [None]
